FAERS Safety Report 4740631-2 (Version None)
Quarter: 2005Q3

REPORT INFORMATION
  Report Type: 
  Country: None (occurrence: None)
  Receive Date: 20050810
  Receipt Date: 20050805
  Transmission Date: 20060218
  Serious: Yes (Hospitalization, Disabling, Other)
  Sender: FDA-Public Use
  Company Number: US-MERCK-0508USA01315

PATIENT
  Age: 89 Year
  Sex: Female
  Weight: 55 kg

DRUGS (4)
  1. FOSAMAX [Suspect]
     Indication: OSTEOPOROSIS
     Route: 048
  2. ALDOMET [Concomitant]
     Route: 065
  3. SYNTHROID [Concomitant]
     Route: 065
  4. MICARDIS [Concomitant]
     Route: 065

REACTIONS (1)
  - HIP FRACTURE [None]
